FAERS Safety Report 16982600 (Version 1)
Quarter: 2019Q4

REPORT INFORMATION
  Report Type: Spontaneous
  Country: JP (occurrence: JP)
  Receive Date: 20191101
  Receipt Date: 20191101
  Transmission Date: 20200122
  Serious: Yes (Hospitalization, Other)
  Sender: FDA-Public Use
  Company Number: JP-CPL-001317

PATIENT
  Age: 80 Year
  Sex: Female

DRUGS (3)
  1. AZILSARTAN [Concomitant]
     Active Substance: AZILSARTAN KAMEDOXOMIL
     Indication: HYPERTENSION
  2. MEMANTINE. [Concomitant]
     Active Substance: MEMANTINE
     Indication: DEMENTIA
  3. DONEPEZIL. [Suspect]
     Active Substance: DONEPEZIL
     Indication: DEMENTIA

REACTIONS (4)
  - Skin abrasion [Unknown]
  - Immobile [Recovered/Resolved]
  - Rhabdomyolysis [Recovering/Resolving]
  - Jaw fracture [Unknown]
